FAERS Safety Report 10881576 (Version 1)
Quarter: 2015Q1

REPORT INFORMATION
  Report Type: Spontaneous
  Country: US (occurrence: US)
  Receive Date: 20150303
  Receipt Date: 20150303
  Transmission Date: 20150721
  Serious: Yes (Hospitalization)
  Sender: FDA-Public Use
  Company Number: US-BAYER-2015-029536

PATIENT
  Age: 18 Year
  Sex: Female
  Weight: 65.76 kg

DRUGS (2)
  1. IBUPROFEN [IBUPROFEN] [Concomitant]
     Active Substance: IBUPROFEN
     Indication: CONTRACEPTION
     Dosage: UNK
     Dates: start: 20110713
  2. YAZ [Suspect]
     Active Substance: DROSPIRENONE\ETHINYL ESTRADIOL
     Route: 048

REACTIONS (1)
  - Ischaemic stroke [None]

NARRATIVE: CASE EVENT DATE: 20110718
